FAERS Safety Report 5858532-5 (Version None)
Quarter: 2008Q3

REPORT INFORMATION
  Report Type: 
  Country: None (occurrence: None)
  Receive Date: 20080826
  Receipt Date: 20080814
  Transmission Date: 20090109
  Serious: Yes (Death)
  Sender: FDA-Public Use
  Company Number: US-PFIZER INC-2008067929

PATIENT
  Sex: Male
  Weight: 108.9 kg

DRUGS (6)
  1. SERTRALINE [Suspect]
  2. DURAGESIC-100 [Suspect]
     Indication: PAIN
     Dates: start: 20031104, end: 20061215
  3. ACTIQ [Suspect]
     Indication: NECK PAIN
     Dosage: DAILY DOSE:1600MCG-TEXT:UP TO 4 LOZENGES DAILY PRN BUCCAL
     Dates: start: 20040129, end: 20061215
  4. ACTIQ [Suspect]
     Indication: BACK PAIN
  5. BUPROPION HCL [Suspect]
  6. METOPROLOL TARTRATE [Suspect]

REACTIONS (1)
  - ACCIDENTAL OVERDOSE [None]
